FAERS Safety Report 9147441 (Version 2)
Quarter: 2013Q1

REPORT INFORMATION
  Report Type: Spontaneous
  Country: US (occurrence: US)
  Receive Date: 20130307
  Receipt Date: 20130328
  Transmission Date: 20140127
  Serious: No
  Sender: FDA-Public Use
  Company Number: US-PFIZER INC-2013078455

PATIENT
  Age: 79 Year
  Sex: Female

DRUGS (4)
  1. LYRICA [Suspect]
     Indication: SCIATICA
     Dosage: UNK
  2. MIRAPEX [Suspect]
     Indication: RESTLESS LEGS SYNDROME
     Dosage: UNK
  3. COUMADIN [Suspect]
     Indication: ATRIAL FIBRILLATION
     Dosage: UNK
  4. NOVOCAINE [Suspect]
     Dosage: UNK

REACTIONS (2)
  - Drug hypersensitivity [Unknown]
  - Dizziness [Unknown]
